FAERS Safety Report 7303409-1 (Version None)
Quarter: 2011Q1

REPORT INFORMATION
  Report Type: 
  Country: None (occurrence: None)
  Receive Date: 20110221
  Receipt Date: 20110207
  Transmission Date: 20110831
  Serious: Yes (Other)
  Sender: FDA-Public Use
  Company Number: US-ELI_LILLY_AND_COMPANY-US201012000296

PATIENT
  Sex: Female

DRUGS (11)
  1. FORTEO [Suspect]
     Indication: OSTEOPOROSIS
     Dosage: 20 UG, DAILY (1/D)
     Route: 058
     Dates: start: 20100801
  2. CITALOPRAM HYDROBROMIDE [Concomitant]
     Dosage: 20 MG, UNK
  3. FORTEO [Suspect]
     Dosage: 20 UG, DAILY (1/D)
     Dates: start: 20101101
  4. ASPIRIN [Concomitant]
  5. NITROFURANTOIN MONOHYDRATE/MACROCRYSTALS [Concomitant]
     Dosage: 100 MG, UNK
  6. DILTIAZEM [Concomitant]
     Dosage: 120 MG, UNK
  7. KLOR-CON [Concomitant]
     Dosage: 30 MEQ, EACH MORNING
  8. VITAMIN D [Concomitant]
     Dosage: 5000 IU, UNK
  9. CARVEDILOL [Concomitant]
     Dosage: 25 MG, UNK
  10. VITAMIN D [Concomitant]
     Dosage: 50000 IU, MONTHLY (1/M)
  11. LANSOPRAZOLE [Concomitant]
     Dosage: 30 MG, UNK

REACTIONS (4)
  - CONSTIPATION [None]
  - VAGINAL HAEMORRHAGE [None]
  - CEREBRAL HAEMORRHAGE [None]
  - FALL [None]
